FAERS Safety Report 10613913 (Version 1)
Quarter: 2014Q4

REPORT INFORMATION
  Report Type: Report from Study
  Country: US (occurrence: US)
  Receive Date: 20141128
  Receipt Date: 20141128
  Transmission Date: 20150529
  Serious: Yes (Hospitalization)
  Sender: FDA-Public Use
  Company Number: US-ACTELION-A-US2014-108882

PATIENT
  Age: 57 Year
  Sex: Male

DRUGS (1)
  1. VENTAVIS [Suspect]
     Active Substance: ILOPROST
     Indication: COR PULMONALE CHRONIC
     Dosage: 5 MCG, 2-9X/DAILY
     Route: 055
     Dates: start: 20080222

REACTIONS (3)
  - Weight decreased [Unknown]
  - Cough [Unknown]
  - Influenza [Unknown]
